FAERS Safety Report 9182332 (Version 4)
Quarter: 2013Q3

REPORT INFORMATION
  Report Type: Spontaneous
  Country: US (occurrence: US)
  Receive Date: 20130322
  Receipt Date: 20130909
  Transmission Date: 20140515
  Serious: Yes (Hospitalization, Other)
  Sender: FDA-Public Use
  Company Number: US-ELI_LILLY_AND_COMPANY-US201303004467

PATIENT
  Sex: Female
  Weight: 71.2 kg

DRUGS (9)
  1. CYMBALTA [Suspect]
     Indication: DIABETIC NEUROPATHY
     Dosage: 60 MG, UNK
  2. PREDNISONE [Concomitant]
  3. GABAPENTIN [Concomitant]
  4. PERCOCET [Concomitant]
  5. ASA [Concomitant]
     Dosage: 81 MG, UNK
  6. PROAIR HFA [Concomitant]
  7. PRAVASTATIN [Concomitant]
     Indication: DIABETIC NEUROPATHY
  8. ALBUTEROL [Concomitant]
  9. XOPENEX HFA [Concomitant]

REACTIONS (7)
  - Bronchitis [Recovered/Resolved]
  - Emphysema [Recovered/Resolved]
  - Neuralgia [Unknown]
  - Drug ineffective [Unknown]
  - Anger [Unknown]
  - Balance disorder [Unknown]
  - Memory impairment [Unknown]
